FAERS Safety Report 7820248-3 (Version None)
Quarter: 2011Q4

REPORT INFORMATION
  Report Type: 
  Country: None (occurrence: None)
  Receive Date: 20111018
  Receipt Date: 20111004
  Transmission Date: 20120403
  Serious: Yes (Hospitalization)
  Sender: FDA-Public Use
  Company Number: US-BAYER-2011-095718

PATIENT
  Age: 72 Year
  Sex: Female

DRUGS (4)
  1. SODIUM BICARBONATE [Suspect]
     Indication: DYSPEPSIA
     Dosage: UNK
     Dates: start: 20110916
  2. PRILOSEC [Suspect]
     Indication: DYSPEPSIA
     Dosage: UNK
     Dates: start: 20110916
  3. BIOTENE [Suspect]
     Indication: DRY MOUTH
  4. CALCIUM CARBONATE [Suspect]
     Indication: DYSPEPSIA
     Dosage: UNK
     Dates: start: 20110916

REACTIONS (12)
  - MALAISE [None]
  - FEELING ABNORMAL [None]
  - LOSS OF CONSCIOUSNESS [None]
  - ASPIRATION [None]
  - BLOOD SODIUM DECREASED [None]
  - DYSPEPSIA [None]
  - POOR QUALITY SLEEP [None]
  - AMNESIA [None]
  - COUGH [None]
  - HYPERCHLORHYDRIA [None]
  - VOMITING [None]
  - DRUG INEFFECTIVE [None]
